FAERS Safety Report 4617311-7 (Version None)
Quarter: 2005Q1

REPORT INFORMATION
  Report Type: 
  Country: None (occurrence: None)
  Receive Date: 20050323
  Receipt Date: 20050316
  Transmission Date: 20050727
  Serious: Yes (Death)
  Sender: FDA-Public Use
  Company Number: DE-MERCK-0503DEU00158

PATIENT
  Sex: Male

DRUGS (2)
  1. VIOXX [Suspect]
     Indication: OSTEOPOROSIS
     Route: 048
  2. [THERAPY UNSPECIFIED] [Concomitant]
     Route: 061

REACTIONS (1)
  - DEATH [None]
